FAERS Safety Report 16388817 (Version 2)
Quarter: 2019Q3

REPORT INFORMATION
  Report Type: Report from Study
  Country: None (occurrence: US)
  Receive Date: 20190604
  Receipt Date: 20190709
  Transmission Date: 20191004
  Serious: Yes (Other)
  Sender: FDA-Public Use
  Company Number: US-ABBVIE-19S-163-2805744-00

PATIENT
  Age: 65 Year
  Sex: Male
  Weight: 79.9 kg

DRUGS (5)
  1. TYLENOL [Concomitant]
     Active Substance: ACETAMINOPHEN
     Indication: PAIN
  2. INSULIN DEGLUDEC [Concomitant]
     Active Substance: INSULIN DEGLUDEC
     Indication: PRODUCT USED FOR UNKNOWN INDICATION
     Dosage: INJECT INTO THE SKIN NIGHTLY, 100 UNIT/ ML
     Route: 065
  3. CREON [Suspect]
     Active Substance: PANCRELIPASE AMYLASE\PANCRELIPASE LIPASE\PANCRELIPASE PROTEASE
     Dosage: 1 CAP 3X DALY WITH MEALS (5 REFILLS)
     Route: 048
     Dates: start: 2019
  4. LISINOPRIL. [Concomitant]
     Active Substance: LISINOPRIL
     Indication: PRODUCT USED FOR UNKNOWN INDICATION
     Dosage: BY MOUTH DAILY
     Route: 065
  5. CREON [Suspect]
     Active Substance: PANCRELIPASE AMYLASE\PANCRELIPASE LIPASE\PANCRELIPASE PROTEASE
     Indication: DUCTAL ADENOCARCINOMA OF PANCREAS
     Dosage: 1 CAP WITH SNACKS (5 REFILLS)
     Route: 048
     Dates: start: 20190430, end: 2019

REACTIONS (2)
  - Diarrhoea [Recovered/Resolved]
  - Adenocarcinoma pancreas [Unknown]

NARRATIVE: CASE EVENT DATE: 201901
